FAERS Safety Report 7902100-8 (Version None)
Quarter: 2011Q4

REPORT INFORMATION
  Report Type: 
  Country: None (occurrence: None)
  Receive Date: 20111108
  Receipt Date: 20111026
  Transmission Date: 20120403
  Serious: Yes (Hospitalization)
  Sender: FDA-Public Use
  Company Number: US-BAYER-2011-062582

PATIENT
  Age: 23 Year
  Sex: Female

DRUGS (2)
  1. MIRENA [Concomitant]
     Dosage: UNK
     Route: 015
     Dates: start: 20090812
  2. YAZ [Suspect]
     Indication: CONTRACEPTION
     Dosage: UNK
     Route: 048
     Dates: start: 20080401, end: 20080801

REACTIONS (5)
  - CHOLELITHIASIS [None]
  - CHOLECYSTITIS ACUTE [None]
  - INJURY [None]
  - EMOTIONAL DISTRESS [None]
  - PAIN [None]
